FAERS Safety Report 8103553-5 (Version None)
Quarter: 2012Q1

REPORT INFORMATION
  Report Type: 
  Country: None (occurrence: None)
  Receive Date: 20120201
  Receipt Date: 20120125
  Transmission Date: 20120608
  Serious: Yes (Hospitalization)
  Sender: FDA-Public Use
  Company Number: JP-PFIZER INC-2011191320

PATIENT
  Age: 68 Year
  Sex: Male
  Weight: 55 kg

DRUGS (7)
  1. TEMSIROLIMUS [Suspect]
     Indication: RENAL CELL CARCINOMA
     Dosage: 25 MG, SINGLE
     Route: 041
     Dates: start: 20110301
  2. POLARAMINE [Concomitant]
     Indication: PROPHYLAXIS
     Dosage: 5 MG, 1X/DAY
     Route: 042
     Dates: start: 20110301
  3. MUCOSTA [Concomitant]
     Dosage: 100 MG, 3X/DAY
     Route: 048
     Dates: start: 20110329, end: 20110425
  4. POLARAMINE [Concomitant]
     Route: 042
  5. PURSENNID [Concomitant]
     Dosage: 24 MG, 1X/DAY
     Route: 048
     Dates: start: 20110329, end: 20110404
  6. PURSENNID [Concomitant]
     Dosage: 24 MG, 1X/DAY
     Route: 048
     Dates: start: 20110419, end: 20110509
  7. PRIMPERAN TAB [Concomitant]
     Indication: PROPHYLAXIS
     Dosage: 5 MG, 3X/DAY
     Route: 048
     Dates: start: 20110329, end: 20110409

REACTIONS (4)
  - IRON DEFICIENCY ANAEMIA [None]
  - MALAISE [None]
  - GAIT DISTURBANCE [None]
  - ECZEMA [None]
